FAERS Safety Report 7917766-6 (Version None)
Quarter: 2011Q4

REPORT INFORMATION
  Report Type: 
  Country: None (occurrence: None)
  Receive Date: 20111116
  Receipt Date: 20111114
  Transmission Date: 20120403
  Serious: Yes (Other)
  Sender: FDA-Public Use
  Company Number: FR-ROCHE-1012561

PATIENT
  Age: 39 Year
  Sex: Female

DRUGS (12)
  1. IRINOTECAN HCL [Suspect]
     Dates: start: 20070901
  2. IRINOTECAN HCL [Suspect]
     Indication: COLORECTAL CANCER METASTATIC
     Dates: end: 20061101
  3. OXALIPLATIN [Suspect]
     Indication: COLORECTAL CANCER METASTATIC
     Dates: end: 20090301
  4. LEUCOVORIN CALCIUM [Suspect]
     Dates: start: 20070901
  5. LEUCOVORIN CALCIUM [Suspect]
     Dates: end: 20090301
  6. FLUOROURACIL [Suspect]
     Dates: start: 20070901
  7. BEVACIZUMAB [Suspect]
     Indication: COLORECTAL CANCER METASTATIC
     Dates: end: 20061101
  8. FLUOROURACIL [Suspect]
     Indication: COLORECTAL CANCER METASTATIC
     Dates: end: 20061101
  9. FLUOROURACIL [Suspect]
     Dates: end: 20090301
  10. BEVACIZUMAB [Suspect]
     Dates: start: 20070901
  11. BEVACIZUMAB [Suspect]
     Dates: end: 20090301
  12. LEUCOVORIN CALCIUM [Suspect]
     Indication: COLORECTAL CANCER METASTATIC
     Dates: end: 20061101

REACTIONS (2)
  - HYPERTROPHIC OSTEOARTHROPATHY [None]
  - PARANEOPLASTIC SYNDROME [None]
